FAERS Safety Report 10818766 (Version 2)
Quarter: 2015Q2

REPORT INFORMATION
  Report Type: Spontaneous
  Country: CA (occurrence: CA)
  Receive Date: 20150218
  Receipt Date: 20150427
  Transmission Date: 20150821
  Serious: Yes (Other)
  Sender: FDA-Public Use
  Company Number: ALCN2015CA001222

PATIENT
  Sex: Female

DRUGS (3)
  1. ACULAR [Concomitant]
     Active Substance: KETOROLAC TROMETHAMINE
     Indication: POSTOPERATIVE CARE
     Dosage: 1 DF, PRN
     Route: 047
     Dates: start: 20150204, end: 20150208
  2. VIGAMOX [Suspect]
     Active Substance: MOXIFLOXACIN HYDROCHLORIDE
     Indication: POSTOPERATIVE CARE
     Dosage: 1 GTT, QID
     Route: 047
     Dates: start: 20150204, end: 20150208
  3. PREDNISOLONE ^RATIOPHARM^ [Concomitant]
     Indication: POSTOPERATIVE CARE
     Dosage: 1 DF, PRN
     Route: 047
     Dates: start: 20150204, end: 20150208

REACTIONS (3)
  - Visual impairment [Recovering/Resolving]
  - Headache [Recovered/Resolved]
  - Eye pain [Recovered/Resolved]

NARRATIVE: CASE EVENT DATE: 20150204
